FAERS Safety Report 14503900 (Version 1)
Quarter: 2018Q1

REPORT INFORMATION
  Report Type: Spontaneous
  Country: US (occurrence: US)
  Receive Date: 20180208
  Receipt Date: 20180208
  Transmission Date: 20180509
  Serious: No
  Sender: FDA-Public Use
  Company Number: US-JNJFOC-20180105081

PATIENT
  Age: 14 Month
  Sex: Male
  Weight: 11.34 kg

DRUGS (2)
  1. INFANTS MOTRIN [Suspect]
     Active Substance: IBUPROFEN
     Route: 065
  2. INFANTS MOTRIN [Suspect]
     Active Substance: IBUPROFEN
     Indication: ACCIDENTAL EXPOSURE TO PRODUCT
     Dosage: 4.7ML OR MAYBE CLOSER TO 4.5ML
     Route: 065
     Dates: start: 20180103

REACTIONS (2)
  - Extra dose administered [Unknown]
  - Wrong drug administered [Unknown]

NARRATIVE: CASE EVENT DATE: 20180103
